FAERS Safety Report 8695389 (Version 3)
Quarter: 2014Q2

REPORT INFORMATION
  Report Type: Spontaneous
  Country: US (occurrence: US)
  Receive Date: 20120731
  Receipt Date: 20140402
  Transmission Date: 20141212
  Serious: Yes (Hospitalization, Other)
  Sender: FDA-Public Use
  Company Number: US-ASTRAZENECA-2012SE46820

PATIENT
  Age: 63 Year
  Sex: Female
  Weight: 60.3 kg

DRUGS (9)
  1. NEXIUM [Suspect]
     Indication: GASTROOESOPHAGEAL REFLUX DISEASE
     Route: 048
     Dates: start: 2001, end: 2012
  2. NEXIUM [Suspect]
     Indication: GASTROOESOPHAGEAL REFLUX DISEASE
     Route: 048
     Dates: start: 2012
  3. TAMOXIFEN [Suspect]
     Indication: BREAST CANCER
     Route: 048
     Dates: start: 201401
  4. CALCIUM [Concomitant]
  5. VITAMIN D [Concomitant]
  6. RECLAST [Concomitant]
     Indication: OSTEOPENIA
     Route: 042
     Dates: start: 2011
  7. CITRACAL [Concomitant]
     Indication: SUPPLEMENTATION THERAPY
     Route: 048
     Dates: start: 2008
  8. VITAMIN D3 [Concomitant]
     Indication: SUPPLEMENTATION THERAPY
     Route: 048
     Dates: start: 2009
  9. HORMONE REPLACEMENT [Concomitant]

REACTIONS (5)
  - Breast cancer female [Unknown]
  - Cataract [Unknown]
  - Osteopenia [Unknown]
  - Hot flush [Unknown]
  - Off label use [Unknown]
